FAERS Safety Report 8223571-6 (Version None)
Quarter: 2012Q1

REPORT INFORMATION
  Report Type: 
  Country: None (occurrence: None)
  Receive Date: 20120321
  Receipt Date: 20120316
  Transmission Date: 20120608
  Serious: Yes (Other)
  Sender: FDA-Public Use
  Company Number: US-PFIZER INC-2011296358

PATIENT
  Sex: Female

DRUGS (5)
  1. CHANTIX [Suspect]
     Indication: SMOKING CESSATION THERAPY
     Dosage: UNK
     Dates: start: 20090429, end: 20090501
  2. FERGON [Concomitant]
     Indication: ANAEMIA
     Dosage: UNK
     Dates: start: 20060101
  3. FLEXERIL [Concomitant]
     Indication: MUSCLE RELAXANT THERAPY
     Dosage: UNK
     Dates: start: 20070101
  4. SENOKOT [Concomitant]
     Indication: CONSTIPATION
     Dosage: UNK
     Dates: start: 20060101
  5. LEVOTHYROXINE SODIUM [Concomitant]
     Indication: HYPOTHYROIDISM
     Dosage: UNK
     Dates: start: 20050101

REACTIONS (5)
  - INTENTIONAL OVERDOSE [None]
  - SUICIDE ATTEMPT [None]
  - AGGRESSION [None]
  - DEPRESSION [None]
  - ANXIETY [None]
